FAERS Safety Report 9881574 (Version 3)
Quarter: 2014Q2

REPORT INFORMATION
  Report Type: Spontaneous
  Country: FR (occurrence: FR)
  Receive Date: 20140207
  Receipt Date: 20140612
  Transmission Date: 20141212
  Serious: Yes (Hospitalization)
  Sender: FDA-Public Use
  Company Number: FR-PFIZER INC-2014032684

PATIENT
  Age: 60 Year
  Sex: Male

DRUGS (3)
  1. LIPURO [Suspect]
     Indication: HYPERCHOLESTEROLAEMIA
     Dosage: 450 MG, 1X/DAY
     Route: 048
  2. VALACICLOVIR HYDROCHLORIDE [Suspect]
     Indication: HERPES VIRUS INFECTION
     Dosage: 500 MG, 2X/DAY
     Route: 048
     Dates: start: 201307
  3. HAVRIX [Suspect]
     Indication: PROPHYLAXIS
     Dosage: 1 DF, SINGLE
     Route: 058
     Dates: start: 20131202, end: 20131202

REACTIONS (8)
  - Abdominal pain upper [Recovered/Resolved]
  - Back pain [Recovered/Resolved]
  - Back pain [Recovered/Resolved]
  - Dyspnoea [Recovered/Resolved]
  - Painful respiration [Recovered/Resolved]
  - Haemoptysis [Recovered/Resolved]
  - Pulmonary embolism [Recovered/Resolved]
  - Deep vein thrombosis [Recovered/Resolved]
